FAERS Safety Report 20574150 (Version 1)
Quarter: 2022Q1

REPORT INFORMATION
  Report Type: Spontaneous
  Country: FR (occurrence: FR)
  Receive Date: 20220309
  Receipt Date: 20220309
  Transmission Date: 20220424
  Serious: Yes (Hospitalization)
  Sender: FDA-Public Use
  Company Number: None

PATIENT
  Age: 53 Year
  Sex: Female

DRUGS (4)
  1. XANAX [Suspect]
     Active Substance: ALPRAZOLAM
     Dosage: UNK
     Route: 048
     Dates: end: 20210412
  2. TOBACCO LEAF [Suspect]
     Active Substance: TOBACCO LEAF
     Dosage: 10 TO 20 CIGARETTES
     Route: 055
     Dates: start: 1982
  3. ZOPICLONE [Suspect]
     Active Substance: ZOPICLONE
     Dosage: NOT SPECIFIED
     Route: 048
     Dates: end: 20210412
  4. ALCOHOL [Suspect]
     Active Substance: ALCOHOL
     Dosage: 7 DF PER DAY
     Route: 048
     Dates: start: 1985, end: 20210412

REACTIONS (2)
  - Drug abuse [Recovering/Resolving]
  - Sleep disorder [Recovering/Resolving]
